FAERS Safety Report 11794667 (Version 1)
Quarter: 2015Q4

REPORT INFORMATION
  Report Type: Spontaneous
  Country: US (occurrence: None)
  Receive Date: 20151202
  Receipt Date: 20151202
  Transmission Date: 20160305
  Serious: Yes (Other)
  Sender: FDA-Public Use
  Company Number: US-MDT-ADR-2015-02265

PATIENT
  Age: 25 Year
  Sex: Female

DRUGS (2)
  1. COMPOUNDED BACLOFEN INTRATHECAL 2,000MCG/ML [Suspect]
     Active Substance: BACLOFEN
     Indication: MUSCLE SPASTICITY
     Dosage: 300.4MCG/ML
  2. CLONIDINE INTRATHECAL 10.0MCG/ML [Suspect]
     Active Substance: CLONIDINE
     Dosage: 1.502MCG/DAY

REACTIONS (3)
  - Drug prescribing error [None]
  - Implant site infection [None]
  - Staphylococcal infection [None]
